FAERS Safety Report 5004213-X (Version None)
Quarter: 2006Q2

REPORT INFORMATION
  Report Type: 
  Country: None (occurrence: None)
  Receive Date: 20060511
  Receipt Date: 20060426
  Transmission Date: 20061013
  Serious: Yes (Death, Hospitalization)
  Sender: FDA-Public Use
  Company Number: 224651

PATIENT
  Age: 74 Year
  Sex: Female

DRUGS (6)
  1. BEVACIZUMAB OR CODE BROKEN (BEVACIZUMAB) PWDR + SOLVENT, INFUSION SOLN [Suspect]
     Indication: NON-SMALL CELL LUNG CANCER
     Dosage: 1145 MG, Q3W, INTRAVENOUS
     Route: 042
     Dates: start: 20050901, end: 20060127
  2. BEVACIZUMAB OR CODE BROKEN (BEVACIZUMAB) PWDR + SOLVENT, INFUSION SOLN [Suspect]
  3. OXYGEN (OXYGEN) [Concomitant]
  4. TPN (HYPERALIMENTATION) [Concomitant]
  5. ERLOTINIB NOT ADMINISTERED (NO DRUG ADMINISTERED) NOT APPLICABLE [Suspect]
     Indication: NON-SMALL CELL LUNG CANCER
  6. ALIMTA [Suspect]
     Indication: NON-SMALL CELL LUNG CANCER
     Dosage: 940 MG, Q3W, INTRAVENOUS
     Route: 042
     Dates: start: 20050901, end: 20060127

REACTIONS (8)
  - ABDOMINAL DISTENSION [None]
  - ASCITES [None]
  - ATELECTASIS [None]
  - FISTULA [None]
  - ILEUS [None]
  - LOWER GASTROINTESTINAL HAEMORRHAGE [None]
  - RECTAL HAEMORRHAGE [None]
  - WOUND DEHISCENCE [None]
